FAERS Safety Report 7854743-8 (Version None)
Quarter: 2011Q4

REPORT INFORMATION
  Report Type: 
  Country: None (occurrence: None)
  Receive Date: 20111026
  Receipt Date: 20110823
  Transmission Date: 20120403
  Serious: No
  Sender: FDA-Public Use
  Company Number: US-MUTUAL PHARMACEUTICAL COMPANY, INC.-CLCY20110112

PATIENT
  Sex: Male
  Weight: 83.99 kg

DRUGS (12)
  1. PLAVIX [Concomitant]
     Indication: ANTICOAGULANT THERAPY
     Route: 048
  2. PRADAXA [Concomitant]
     Indication: ANTICOAGULANT THERAPY
     Route: 048
  3. COLCRYS [Suspect]
     Indication: PERICARDITIS
     Route: 048
     Dates: start: 20110304, end: 20110614
  4. LASIX [Concomitant]
     Indication: CARDIAC FAILURE
     Route: 048
  5. COREG [Concomitant]
     Indication: HEART RATE IRREGULAR
     Route: 048
  6. COLCRYS [Suspect]
     Route: 048
     Dates: start: 20110211, end: 20110212
  7. HYDROCODONE 5 MG / 325 MG [Concomitant]
     Indication: PAIN IN EXTREMITY
     Route: 048
  8. ISORBIDE [Concomitant]
     Indication: ANGINA PECTORIS
     Route: 048
  9. LISINOPRIL [Concomitant]
     Indication: HYPERTENSION
     Route: 048
  10. PREDNISONE [Concomitant]
     Indication: PERICARDITIS
     Route: 048
  11. ASPIRIN [Concomitant]
     Indication: ANGINA PECTORIS
     Route: 048
  12. MULTAQ [Concomitant]
     Indication: HEART RATE IRREGULAR
     Route: 048

REACTIONS (2)
  - DIARRHOEA [None]
  - OFF LABEL USE [None]
